FAERS Safety Report 6159060-2 (Version None)
Quarter: 2009Q2

REPORT INFORMATION
  Report Type: 
  Country: None (occurrence: None)
  Receive Date: 20090415
  Receipt Date: 20090408
  Transmission Date: 20091009
  Serious: Yes (Other)
  Sender: FDA-Public Use
  Company Number: DSA_33230_2009

PATIENT
  Sex: Male
  Weight: 96.1626 kg

DRUGS (3)
  1. CARDIZEM CD [Suspect]
     Indication: HYPERTENSION
     Dosage: (300 MG QD ORAL)
     Route: 048
     Dates: start: 19920101
  2. ASPIRIN [Concomitant]
  3. DAILY MULTIVITAMIN [Concomitant]

REACTIONS (3)
  - BLOOD PRESSURE FLUCTUATION [None]
  - FALL [None]
  - NECK INJURY [None]
